FAERS Safety Report 20356048 (Version 1)
Quarter: 2022Q1

REPORT INFORMATION
  Report Type: Spontaneous
  Country: GB (occurrence: GB)
  Receive Date: 20220120
  Receipt Date: 20220120
  Transmission Date: 20220423
  Serious: Yes (Hospitalization, Other)
  Sender: FDA-Public Use
  Company Number: GB-SLATE RUN PHARMACEUTICALS-22GB000862

PATIENT

DRUGS (3)
  1. VANCOMYCIN HYDROCHLORIDE [Suspect]
     Active Substance: VANCOMYCIN HYDROCHLORIDE
     Indication: Bacterial infection
     Dosage: UNK
     Route: 042
  2. URSODIOL [Concomitant]
     Active Substance: URSODIOL
     Indication: Cholestasis
  3. UNSPECIFIED INGREDIENT [Concomitant]
     Active Substance: UNSPECIFIED INGREDIENT
     Indication: Resuscitation

REACTIONS (7)
  - Delirium [Recovering/Resolving]
  - Meningitis streptococcal [Unknown]
  - CNS ventriculitis [Recovering/Resolving]
  - Endocarditis [Unknown]
  - Premature delivery [Recovered/Resolved]
  - Headache [Recovered/Resolved]
  - Maternal exposure during pregnancy [Recovered/Resolved]
